APPROVED DRUG PRODUCT: MESNA
Active Ingredient: MESNA
Strength: 100MG/ML
Dosage Form/Route: INJECTABLE;INTRAVENOUS
Application: A076488 | Product #001
Applicant: MYLAN INSTITUTIONAL LLC
Approved: Mar 8, 2012 | RLD: No | RS: No | Type: DISCN